FAERS Safety Report 19497875 (Version 1)
Quarter: 2021Q3

REPORT INFORMATION
  Report Type: Spontaneous
  Country: CN (occurrence: CN)
  Receive Date: 20210706
  Receipt Date: 20210706
  Transmission Date: 20211014
  Serious: Yes (Hospitalization)
  Sender: FDA-Public Use
  Company Number: CN-AMNEAL PHARMACEUTICALS-2021-AMRX-02625

PATIENT
  Age: 40 Year
  Sex: Male
  Weight: 65 kg

DRUGS (5)
  1. MEROPENEM. [Suspect]
     Active Substance: MEROPENEM
     Indication: EVIDENCE BASED TREATMENT
     Dosage: 1 GRAM, 3X/DAY
     Route: 042
  2. SILVER SULFADIAZINE. [Concomitant]
     Active Substance: SILVER SULFADIAZINE
     Indication: THERMAL BURN
     Dosage: UNK
     Route: 061
  3. TIGECYCLINE. [Suspect]
     Active Substance: TIGECYCLINE
     Indication: KLEBSIELLA INFECTION
     Dosage: 0.5 GRAM, 3X/DAY
     Route: 042
  4. FRESUBIN [CARBOHYDRATES NOS;FATTY ACIDS NOS;MINERALS NOS;PROTEINS NOS; [Concomitant]
     Active Substance: CARBOHYDRATES\FATTY ACIDS\MINERALS\PROTEIN\VITAMINS
     Indication: NUTRITIONAL SUPPLEMENTATION
     Dosage: 1000 MILLILITER, DAILY
     Route: 048
  5. FOSFOMYCIN SODIUM [Concomitant]
     Active Substance: FOSFOMYCIN SODIUM
     Indication: KLEBSIELLA INFECTION
     Dosage: 4 GRAM, TID
     Route: 042

REACTIONS (2)
  - Hypocoagulable state [Recovered/Resolved]
  - Vitamin K deficiency [Recovered/Resolved]
